FAERS Safety Report 15487925 (Version 1)
Quarter: 2018Q4

REPORT INFORMATION
  Report Type: Spontaneous
  Country: US (occurrence: US)
  Receive Date: 20181003
  Receipt Date: 20181003
  Transmission Date: 20190205
  Serious: Yes (Life-Threatening)
  Sender: FDA-Public Use
  Company Number: None

PATIENT
  Age: 70 Year
  Sex: Male
  Weight: 144 kg

DRUGS (1)
  1. LIRAGLUTIDE [Suspect]
     Active Substance: LIRAGLUTIDE
     Indication: DIABETES MELLITUS
     Dosage: 0.6 MG AM SQ
     Route: 058
     Dates: start: 20180719, end: 20180726

REACTIONS (5)
  - Abnormal dreams [None]
  - Suicidal ideation [None]
  - Nausea [None]
  - Therapy change [None]
  - Vomiting [None]

NARRATIVE: CASE EVENT DATE: 20180719
